FAERS Safety Report 16151430 (Version 1)
Quarter: 2019Q2

REPORT INFORMATION
  Report Type: Spontaneous
  Country: FR (occurrence: FR)
  Receive Date: 20190403
  Receipt Date: 20190403
  Transmission Date: 20190711
  Serious: Yes (Other)
  Sender: FDA-Public Use
  Company Number: FR-ROCHE-2294603

PATIENT
  Age: 60 Year
  Sex: Female
  Weight: 45 kg

DRUGS (14)
  1. SANDIMMUN [Suspect]
     Active Substance: CYCLOSPORINE
     Indication: PROPHYLAXIS
     Dosage: 50 MG/ML, SOLUTION INJECTABLE POUR PERFUSION I.V. PROPHYLAXIS AGAINST TRANSPLANT REJECTION
     Route: 042
     Dates: start: 20181127, end: 20190111
  2. HYDROCORTISONE. [Concomitant]
     Active Substance: HYDROCORTISONE
  3. VALACICLOVIR [Concomitant]
     Active Substance: VALACYCLOVIR HYDROCHLORIDE
  4. MEROPENEM. [Suspect]
     Active Substance: MEROPENEM
     Indication: ENTEROBACTER INFECTION
     Dosage: 1 G, POUDRE POUR SOLUTION INJECTABLE/POUR PERFUSION
     Route: 041
     Dates: start: 20181221, end: 20181229
  5. LOXEN (FRANCE) [Concomitant]
     Active Substance: NICARDIPINE HYDROCHLORIDE
  6. FOLIC ACID. [Concomitant]
     Active Substance: FOLIC ACID
  7. WELLVONE [Concomitant]
     Active Substance: ATOVAQUONE
  8. ZARZIO [Concomitant]
     Active Substance: FILGRASTIM
  9. FOSCAVIR [Suspect]
     Active Substance: FOSCARNET SODIUM
     Indication: HUMAN HERPESVIRUS 6 INFECTION
     Dosage: 6 G/250 ML, SOLUTION INJECTABLE
     Route: 041
     Dates: start: 20181218, end: 20190111
  10. PREDNISONE. [Concomitant]
     Active Substance: PREDNISONE
  11. CYMEVAN [Suspect]
     Active Substance: GANCICLOVIR
     Indication: HUMAN HERPESVIRUS 6 INFECTION
     Dosage: PERFUSION
     Route: 042
     Dates: start: 20190112, end: 20190122
  12. PIPERACILLIN/TAZOBACTAM [Concomitant]
     Active Substance: PIPERACILLIN SODIUM\TAZOBACTAM SODIUM
  13. NOXAFIL [Suspect]
     Active Substance: POSACONAZOLE
     Indication: ANTIFUNGAL PROPHYLAXIS
     Dosage: 3 DF
     Route: 048
     Dates: start: 20181203, end: 20190123
  14. PANTOPRAZOLE [Concomitant]
     Active Substance: PANTOPRAZOLE

REACTIONS (5)
  - Hypokalaemia [Not Recovered/Not Resolved]
  - Condition aggravated [Not Recovered/Not Resolved]
  - Epstein-Barr virus infection [Unknown]
  - Product use in unapproved indication [Unknown]
  - Off label use [Unknown]

NARRATIVE: CASE EVENT DATE: 20181221
